FAERS Safety Report 7511150-5 (Version None)
Quarter: 2011Q2

REPORT INFORMATION
  Report Type: 
  Country: None (occurrence: None)
  Receive Date: 20110531
  Receipt Date: 20090930
  Transmission Date: 20111010
  Serious: Yes (Other)
  Sender: FDA-Public Use
  Company Number: US-BAYER-200934424NA

PATIENT
  Age: 60 Year
  Sex: Female
  Weight: 63 kg

DRUGS (17)
  1. LISINOPRIL [Concomitant]
     Route: 048
  2. HYDROCHLOROTHIAZIDE [Concomitant]
     Dosage: 25 MG, QD
     Route: 048
  3. VERSED [Concomitant]
  4. HEPARIN [Concomitant]
     Dosage: UNK
     Route: 042
     Dates: start: 20070922
  5. HEPARIN [Concomitant]
     Dosage: 27000 U, UNK
     Route: 042
     Dates: start: 20071004, end: 20071004
  6. WARFARIN SODIUM [Concomitant]
     Dosage: 5 MG, QD
     Route: 048
  7. ATENOLOL [Concomitant]
     Dosage: 50 MG, QD
     Route: 048
  8. MAXIPIME [Concomitant]
     Indication: OSTEOMYELITIS CHRONIC
     Dosage: 2 MG, QD
     Route: 042
  9. FLUCYTOSINE [Concomitant]
     Dosage: 1500 MG, QID
     Route: 048
     Dates: start: 20070928
  10. ANCEF [Concomitant]
     Dosage: 1 G, UNK
     Route: 042
     Dates: start: 20071004, end: 20071004
  11. THIOPENTAL SODIUM [Concomitant]
     Dosage: UNK
     Route: 042
     Dates: start: 20071004, end: 20071004
  12. CELEBREX [Concomitant]
     Dosage: 200 MG, UNK
     Route: 048
  13. TRASYLOL [Suspect]
     Indication: TRICUSPID VALVE REPAIR
     Dosage: 100 ML, THEN INFUSION OF 25 ML PER HOUR
     Route: 042
     Dates: start: 20071004, end: 20071004
  14. PROSTIGMIN BROMIDE [Concomitant]
     Dosage: UNK
     Route: 042
     Dates: start: 20071004, end: 20071004
  15. DOBUTAMINE HYDROCHLORIDE [Concomitant]
     Dosage: UNK
     Route: 042
     Dates: start: 20071004, end: 20071004
  16. AMPHOTERICIN B [Concomitant]
     Dosage: UNK
     Route: 042
     Dates: start: 20070928
  17. PROTAMINE SULFATE [Concomitant]
     Dosage: 260 MG, UNK
     Route: 042
     Dates: start: 20071004, end: 20071004

REACTIONS (10)
  - FEAR [None]
  - RENAL FAILURE [None]
  - RENAL IMPAIRMENT [None]
  - ANXIETY [None]
  - UNEVALUABLE EVENT [None]
  - EMOTIONAL DISTRESS [None]
  - STRESS [None]
  - RENAL INJURY [None]
  - INJURY [None]
  - PAIN [None]
